FAERS Safety Report 20668130 (Version 1)
Quarter: 2022Q2

REPORT INFORMATION
  Report Type: Spontaneous
  Country: CN (occurrence: None)
  Receive Date: 20220404
  Receipt Date: 20220404
  Transmission Date: 20220720
  Serious: Yes (Other)
  Sender: FDA-Public Use
  Company Number: CN-ROCHE-3063575

PATIENT
  Age: 62 Year
  Sex: Male

DRUGS (13)
  1. MABTHERA [Suspect]
     Active Substance: RITUXIMAB
     Indication: Follicular lymphoma
     Route: 065
     Dates: start: 20210806
  2. OBINUTUZUMAB [Suspect]
     Active Substance: OBINUTUZUMAB
     Indication: Follicular lymphoma
     Dosage: D1, D8, D15
     Route: 042
     Dates: start: 20211123
  3. OBINUTUZUMAB [Suspect]
     Active Substance: OBINUTUZUMAB
     Dosage: D1
     Route: 042
     Dates: start: 20211221
  4. OBINUTUZUMAB [Suspect]
     Active Substance: OBINUTUZUMAB
     Dosage: 20/JAN/2022, 13/FEB/2022, 14/MAR/2022 TREATMENT WITH GB  D0
     Route: 042
  5. CYCLOPHOSPHAMIDE [Concomitant]
     Active Substance: CYCLOPHOSPHAMIDE
     Indication: Follicular lymphoma
     Dates: start: 20210806
  6. PIRARUBICIN [Concomitant]
     Active Substance: PIRARUBICIN
     Indication: Follicular lymphoma
     Dates: start: 20210806
  7. VINCRISTINE [Concomitant]
     Active Substance: VINCRISTINE
     Indication: Follicular lymphoma
     Dates: start: 20210806
  8. PREDNISOLONE [Concomitant]
     Active Substance: PREDNISOLONE
     Indication: Follicular lymphoma
     Dosage: D1-D5
     Dates: start: 20210806
  9. PREDNISOLONE [Concomitant]
     Active Substance: PREDNISOLONE
     Dosage: D1-D5
     Dates: start: 20210917
  10. LENALIDOMIDE [Concomitant]
     Active Substance: LENALIDOMIDE
     Indication: Follicular lymphoma
     Dosage: D1-D5
     Dates: start: 20210806
  11. LENALIDOMIDE [Concomitant]
     Active Substance: LENALIDOMIDE
     Dosage: D1-D21
     Dates: start: 20211123
  12. DENOSUMAB [Concomitant]
     Active Substance: DENOSUMAB
     Indication: Follicular lymphoma
  13. BENDAMUSTINE [Concomitant]
     Active Substance: BENDAMUSTINE
     Indication: Follicular lymphoma
     Dosage: D1-D2
     Dates: start: 20220120

REACTIONS (3)
  - Anaemia [Recovering/Resolving]
  - Granulocyte count decreased [Recovering/Resolving]
  - Hypokalaemia [Unknown]
